FAERS Safety Report 9915770 (Version 1)
Quarter: 2014Q1

REPORT INFORMATION
  Report Type: Spontaneous
  Country: PT (occurrence: None)
  Receive Date: 20140218
  Receipt Date: 20140218
  Transmission Date: 20141002
  Serious: Yes (Hospitalization, Other)
  Sender: FDA-Public Use
  Company Number: AUR-APL-2014-01529

PATIENT
  Age: 8 Year
  Sex: Female

DRUGS (2)
  1. SERTRALINE [Suspect]
     Indication: INSOMNIA
     Dosage: 1500 MG, TOTAL, UNKNOWN
  2. RISPERIDONE (RISPERIDONE) [Concomitant]

REACTIONS (24)
  - Confusional state [None]
  - Intentional overdose [None]
  - Hallucination, visual [None]
  - Flushing [None]
  - Salivary hypersecretion [None]
  - Abnormal behaviour [None]
  - Heart rate increased [None]
  - Hypertension [None]
  - Tachypnoea [None]
  - Muscle rigidity [None]
  - Dyskinesia [None]
  - Myoclonus [None]
  - Blood pH increased [None]
  - PCO2 increased [None]
  - White blood cell count increased [None]
  - Neutrophil percentage decreased [None]
  - Blood urea increased [None]
  - Aspartate aminotransferase increased [None]
  - Dystonia [None]
  - Athetosis [None]
  - Insomnia [None]
  - Rhabdomyolysis [None]
  - Alanine aminotransferase increased [None]
  - Serotonin syndrome [None]
